FAERS Safety Report 5801377 (Version 21)
Quarter: 2012Q4

REPORT INFORMATION
  Report Type: 
  Country: US (occurrence: US)
  Receive Date: 20050523
  Receipt Date: 20120920
  Transmission Date: 20130627
  Serious: Yes (Hospitalization, Other)
  Sender: FDA-Public Use
  Company Number: PHEH2005US04218

PATIENT
  Age: 60 Year
  Sex: Female
  Weight: 54.42 kg

DRUGS (51)
  1. TOBRAMYCIN [Concomitant]
     Dates: start: 20090619
  2. VECURONIUM BROMIDE [Concomitant]
     Dates: start: 20090619
  3. PRILOSEC [Concomitant]
     Dosage: 20 mg, QD
     Route: 048
  4. CALTRATE [Concomitant]
     Dosage: 600 mg, QD
     Route: 048
  5. VITAMIN D [Concomitant]
     Dosage: 50000 IU, QMO
     Route: 048
  6. ATARAX [Concomitant]
  7. AREDIA [Suspect]
     Indication: MULTIPLE MYELOMA
     Dosage: 90 mg, QMO
     Route: 042
     Dates: start: 2002, end: 2005
  8. AREDIA [Suspect]
     Indication: MASTOCYTOSIS
  9. ZOMETA [Suspect]
     Route: 042
     Dates: start: 2002, end: 200511
  10. ADVAIR [Suspect]
  11. PREMARIN                                /NEZ/ [Concomitant]
  12. ZYRTEC [Concomitant]
     Dosage: 10 mg, QD
  13. BENADRYL ^PFIZER WARNER-LAMBERT^ [Concomitant]
     Dates: start: 1991
  14. RANITIDINE [Concomitant]
     Dosage: 150 mg, UNK
  15. PERCOCET [Concomitant]
  16. REMERON [Concomitant]
  17. CHEMOTHERAPEUTICS NOS [Concomitant]
  18. GLEEVEC [Concomitant]
     Dosage: 500 mg, QD
     Route: 048
     Dates: start: 20040519
  19. SINGULAIR [Concomitant]
     Dosage: 10 mg, QD
  20. DIPROLENE [Concomitant]
     Route: 061
  21. ZANTAC [Concomitant]
  22. METHIMAZOLE [Concomitant]
  23. VANCOMYCIN [Concomitant]
  24. EVISTA [Concomitant]
  25. PREDNISONE [Concomitant]
  26. OXYCONTIN [Concomitant]
  27. OXYCODONE [Concomitant]
  28. TAPAZOLE [Concomitant]
  29. MORPHINE [Concomitant]
  30. VALIUM [Concomitant]
  31. CIPRO [Concomitant]
  32. COUMADIN ^BOOTS^ [Concomitant]
  33. PENICILLIN ^GRUNENTHAL^ [Concomitant]
  34. ALBUTEROL [Concomitant]
  35. CLOTRIMAZOLE [Concomitant]
  36. METOPROLOL [Concomitant]
  37. PROAIR (FLUTICASONE PROPIONATE) [Concomitant]
  38. MYCELEX [Concomitant]
  39. AUGMENTIN                               /SCH/ [Concomitant]
  40. DIPROLENE CREAM [Concomitant]
  41. BRONCHODILATORS [Concomitant]
  42. TYLENOL [Concomitant]
     Dosage: 625 mg, UNK
     Route: 048
     Dates: start: 20090619
  43. ETOMIDATE [Concomitant]
     Dosage: 40 mg, UNK
     Route: 042
     Dates: start: 20090619
  44. FENTANYL CITRATE [Concomitant]
     Dosage: 100 ug, UNK
     Dates: start: 20090619
  45. GLYCOPYRROLATE [Concomitant]
     Dosage: 0.2 mg/ml, UNK
  46. HYDROCORTISONE SODIUM SUCCINATE [Concomitant]
     Dosage: 1350 mg, UNK
     Dates: start: 20090619
  47. LACTATED RINGER^S INJECTION [Concomitant]
     Route: 042
     Dates: start: 20090619
  48. LIDOCAINE [Concomitant]
     Dosage: 100 mg, UNK
     Route: 042
  49. METHYLPREDNISOLONE [Concomitant]
     Dosage: 150 mg, UNK
     Dates: start: 20090619
  50. MIDAZOLAM [Concomitant]
     Dosage: 2 mg, UNK
  51. NEOSTIGMINE METHYLSULFATE [Concomitant]

REACTIONS (88)
  - Infection [Unknown]
  - Respiratory distress [Unknown]
  - Osteonecrosis of jaw [Unknown]
  - Oral pain [Unknown]
  - Osteomyelitis [Unknown]
  - Oral disorder [Unknown]
  - Bone disorder [Not Recovered/Not Resolved]
  - Jaw disorder [Unknown]
  - Bone scan abnormal [Unknown]
  - Ulcer [Unknown]
  - Mass [Unknown]
  - Jaw fracture [Unknown]
  - Weight decreased [Unknown]
  - Oroantral fistula [Unknown]
  - Periodontal disease [Unknown]
  - Tooth disorder [Unknown]
  - Denture wearer [Unknown]
  - Swelling [Unknown]
  - Gingival erosion [Unknown]
  - Gingival swelling [Unknown]
  - Palatal oedema [Unknown]
  - Mouth ulceration [Unknown]
  - Swollen tongue [Unknown]
  - Palatal disorder [Unknown]
  - Astrocytoma [Unknown]
  - Lymphoma [Unknown]
  - Metastasis [Unknown]
  - Mastocytosis [Unknown]
  - Condition aggravated [Unknown]
  - Osteopenia [Unknown]
  - Osteoporosis [Unknown]
  - Osteoarthritis [Unknown]
  - Nasal septum deviation [Unknown]
  - Computerised tomogram abnormal [Unknown]
  - Scoliosis [Unknown]
  - Basedow^s disease [Unknown]
  - Exophthalmos [Unknown]
  - Goitre [Unknown]
  - Hyperthyroidism [Unknown]
  - Endocrine ophthalmopathy [Unknown]
  - Diplopia [Unknown]
  - Disorder of orbit [Unknown]
  - Compression fracture [Unknown]
  - Cardiac arrest [Unknown]
  - Asthma [Not Recovered/Not Resolved]
  - Cough [Unknown]
  - Pulmonary congestion [Unknown]
  - Wheezing [Unknown]
  - Dyspnoea [Unknown]
  - Escherichia infection [Unknown]
  - Breast mass [Unknown]
  - Spinal osteoarthritis [Unknown]
  - Aortic aneurysm [Unknown]
  - Hepatic cyst [Unknown]
  - Essential hypertension [Unknown]
  - Ischaemia [Unknown]
  - Tonsillar disorder [Unknown]
  - Oral candidiasis [Unknown]
  - Hypoxia [Unknown]
  - Hypothyroidism [Unknown]
  - Anxiety disorder [Unknown]
  - Polycythaemia [Unknown]
  - Leukocytosis [Unknown]
  - Respiratory failure [Unknown]
  - Rash erythematous [Unknown]
  - Rash vesicular [Unknown]
  - Herpes zoster [Unknown]
  - Cerebrovascular accident [Unknown]
  - Amnesia [Unknown]
  - Aphasia [Unknown]
  - Chronic obstructive pulmonary disease [Unknown]
  - Sinusitis [Unknown]
  - Oral pruritus [Unknown]
  - Pruritus [Unknown]
  - Hyperglycaemia [Unknown]
  - White blood cell count increased [Unknown]
  - Candidiasis [Unknown]
  - Skin lesion [Unknown]
  - Bronchitis [Unknown]
  - Diarrhoea [Unknown]
  - Oral fungal infection [Unknown]
  - Fibrocystic breast disease [Unknown]
  - Dermatitis contact [Unknown]
  - Eczema [Unknown]
  - Rash [Unknown]
  - Hypoaesthesia [Unknown]
  - Oedema peripheral [Unknown]
  - Hyperaemia [Unknown]
